FAERS Safety Report 7309570-7 (Version None)
Quarter: 2011Q1

REPORT INFORMATION
  Report Type: 
  Country: None (occurrence: None)
  Receive Date: 20110223
  Receipt Date: 20110221
  Transmission Date: 20110831
  Serious: Yes (Disabling)
  Sender: FDA-Public Use
  Company Number: US-MERCK-1011USA00665

PATIENT
  Age: 70 Year
  Sex: Female
  Weight: 64 kg

DRUGS (8)
  1. RECLAST [Concomitant]
     Route: 065
  2. ATIVAN [Concomitant]
     Indication: ANXIETY
     Route: 048
  3. PROTONIX [Concomitant]
     Indication: GASTROOESOPHAGEAL REFLUX DISEASE
     Dosage: 40 DAILY
     Route: 065
  4. ZOCOR [Concomitant]
     Indication: BLOOD CHOLESTEROL INCREASED
     Route: 048
  5. ACTONEL [Suspect]
     Route: 065
  6. ALLEGRA [Concomitant]
     Indication: RHINITIS ALLERGIC
     Route: 048
  7. FOSAMAX [Suspect]
     Route: 048
  8. ATENOLOL [Concomitant]
     Route: 048

REACTIONS (3)
  - DRY MOUTH [None]
  - PAIN [None]
  - PRURITUS [None]
